FAERS Safety Report 24796074 (Version 2)
Quarter: 2025Q1

REPORT INFORMATION
  Report Type: Spontaneous
  Country: NZ (occurrence: NZ)
  Receive Date: 20250101
  Receipt Date: 20250201
  Transmission Date: 20250409
  Serious: Yes (Death)
  Sender: ROCHE
  Company Number: NZ-ROCHE-10000169747

PATIENT
  Age: 67 Year
  Sex: Male

DRUGS (3)
  1. POLIVY [Suspect]
     Active Substance: POLATUZUMAB VEDOTIN-PIIQ
     Indication: Diffuse large B-cell lymphoma
     Dosage: HIS LAST DOSE OF POLIVY WAS ON 8TH AUGUST 2024.
     Route: 040
     Dates: start: 20240711, end: 20240808
  2. GLOFITAMAB [Suspect]
     Active Substance: GLOFITAMAB
     Indication: Diffuse large B-cell lymphoma
     Route: 040
     Dates: start: 20240228, end: 20240808
  3. DEXAMETHASONE [Concomitant]
     Active Substance: DEXAMETHASONE
     Indication: Diffuse large B-cell lymphoma
     Route: 040
     Dates: start: 20240328, end: 20240808

REACTIONS (1)
  - Disease progression [Fatal]

NARRATIVE: CASE EVENT DATE: 20240808
